FAERS Safety Report 20738179 (Version 5)
Quarter: 2024Q1

REPORT INFORMATION
  Report Type: Spontaneous
  Country: US (occurrence: US)
  Receive Date: 20220422
  Receipt Date: 20240131
  Transmission Date: 20240409
  Serious: No
  Sender: FDA-Public Use
  Company Number: US-TAKEDA-2022TUS026577

PATIENT
  Sex: Male
  Weight: 95 kg

DRUGS (7)
  1. VYVANSE [Suspect]
     Active Substance: LISDEXAMFETAMINE DIMESYLATE
     Indication: Attention deficit hyperactivity disorder
     Dosage: 20 MILLIGRAM, QD
     Route: 065
     Dates: start: 2017
  2. VYVANSE [Suspect]
     Active Substance: LISDEXAMFETAMINE DIMESYLATE
     Indication: Anxiety
     Dosage: 30 MILLIGRAM
     Route: 065
  3. VYVANSE [Suspect]
     Active Substance: LISDEXAMFETAMINE DIMESYLATE
     Dosage: 40 MILLIGRAM
     Route: 065
  4. VYVANSE [Suspect]
     Active Substance: LISDEXAMFETAMINE DIMESYLATE
     Dosage: 50 MILLIGRAM
     Route: 065
  5. VYVANSE [Suspect]
     Active Substance: LISDEXAMFETAMINE DIMESYLATE
     Dosage: 20 MILLIGRAM, QD
     Route: 065
     Dates: start: 2021
  6. VYVANSE [Suspect]
     Active Substance: LISDEXAMFETAMINE DIMESYLATE
     Dosage: 30 MILLIGRAM, QD
     Route: 065
  7. VYVANSE [Suspect]
     Active Substance: LISDEXAMFETAMINE DIMESYLATE
     Dosage: 50 MILLIGRAM, QD
     Route: 065

REACTIONS (16)
  - Confusional state [Unknown]
  - Stupor [Unknown]
  - Emotional distress [Unknown]
  - Judgement impaired [Unknown]
  - Brain fog [Unknown]
  - Inappropriate affect [Unknown]
  - Product preparation error [Unknown]
  - Drug ineffective [Unknown]
  - Disorganised speech [Unknown]
  - Headache [Unknown]
  - Constipation [Unknown]
  - Somnolence [Unknown]
  - Product dose omission issue [Unknown]
  - Counterfeit product administered [Unknown]
  - Expired product administered [Unknown]
  - Product label on wrong product [Unknown]

NARRATIVE: CASE EVENT DATE: 20200101
